FAERS Safety Report 5976469-8 (Version None)
Quarter: 2008Q4

REPORT INFORMATION
  Report Type: 
  Country: None (occurrence: None)
  Receive Date: 20081126
  Receipt Date: 20081114
  Transmission Date: 20090506
  Serious: Yes (Death, Hospitalization, Other)
  Sender: FDA-Public Use
  Company Number: 2008-03754

PATIENT
  Age: 76 Year
  Sex: Male
  Weight: 76.3 kg

DRUGS (2)
  1. VELCADE [Suspect]
     Indication: COLORECTAL CANCER
     Dosage: 1.3 MG/M2, IV BOLUS
     Route: 040
     Dates: start: 20080930, end: 20081003
  2. 17-AAG(17-ALLYLAMINO-17-DEMETHOXYGELDANAMYCIN) INFUSION [Suspect]
     Indication: COLORECTAL CANCER
     Dosage: 250 MG/M2, INTRAVENOUS
     Route: 042
     Dates: start: 20080930, end: 20081003

REACTIONS (17)
  - ACIDOSIS [None]
  - ACUTE HEPATIC FAILURE [None]
  - BLOOD CREATINE PHOSPHOKINASE MB INCREASED [None]
  - CARDIAC ENZYMES INCREASED [None]
  - CARDIOMYOPATHY [None]
  - COLITIS [None]
  - EJECTION FRACTION DECREASED [None]
  - HYPERTENSION [None]
  - LACTIC ACIDOSIS [None]
  - METABOLIC ACIDOSIS [None]
  - MULTI-ORGAN FAILURE [None]
  - RENAL FAILURE ACUTE [None]
  - RESPIRATORY ACIDOSIS [None]
  - RESPIRATORY FAILURE [None]
  - SOMNOLENCE [None]
  - TROPONIN T INCREASED [None]
  - UNRESPONSIVE TO STIMULI [None]
